FAERS Safety Report 6654688-5 (Version None)
Quarter: 2010Q1

REPORT INFORMATION
  Report Type: 
  Country: None (occurrence: None)
  Receive Date: 20100326
  Receipt Date: 20100324
  Transmission Date: 20100710
  Serious: Yes (Disabling, Other)
  Sender: FDA-Public Use
  Company Number: GB-MERCK-1003GBR00126

PATIENT
  Age: 61 Year
  Sex: Male
  Weight: 80 kg

DRUGS (2)
  1. ZOCOR [Suspect]
     Indication: BLOOD CHOLESTEROL ABNORMAL
     Route: 048
     Dates: start: 19950101, end: 20090201
  2. BISOPROLOL [Concomitant]
     Indication: PALPITATIONS
     Route: 048
     Dates: start: 20080501

REACTIONS (3)
  - GRANULOMA [None]
  - LYMPHOID TISSUE HYPERPLASIA [None]
  - SKIN LESION [None]
